FAERS Safety Report 6655483-3 (Version None)
Quarter: 2010Q1

REPORT INFORMATION
  Report Type: 
  Country: None (occurrence: None)
  Receive Date: 20100329
  Receipt Date: 20091218
  Transmission Date: 20100710
  Serious: Yes (Hospitalization)
  Sender: FDA-Public Use
  Company Number: FR-JNJFOC-20090203275

PATIENT
  Age: 87 Year
  Sex: Female

DRUGS (10)
  1. TAVANIC [Suspect]
     Indication: LUNG INFECTION
     Route: 042
     Dates: start: 20090113, end: 20090115
  2. TAVANIC [Suspect]
     Indication: PYREXIA
     Route: 042
     Dates: start: 20090113, end: 20090115
  3. PREVISCAN [Concomitant]
     Indication: ATRIAL FIBRILLATION
     Route: 048
  4. KARDEGIC [Concomitant]
     Indication: PROPHYLAXIS
     Route: 048
  5. CORDARONE [Concomitant]
     Indication: CORONARY ARTERY INSUFFICIENCY
     Route: 048
  6. EQUANIL [Concomitant]
     Route: 048
  7. AMLOR [Concomitant]
     Indication: CORONARY ARTERY INSUFFICIENCY
     Route: 048
  8. ATHYMIL [Concomitant]
     Route: 048
  9. THERALENE [Concomitant]
     Dosage: 10 U DROPS
     Route: 048
  10. OROCAL D3 [Concomitant]
     Dosage: 1 U TABLETS
     Route: 048

REACTIONS (5)
  - GENERALISED ERYTHEMA [None]
  - ORAL MUCOSAL ERUPTION [None]
  - RASH GENERALISED [None]
  - RENAL FAILURE [None]
  - VULVOVAGINAL DISCOMFORT [None]
